FAERS Safety Report 7930189-9 (Version None)
Quarter: 2011Q4

REPORT INFORMATION
  Report Type: 
  Country: None (occurrence: None)
  Receive Date: 20111121
  Receipt Date: 20111117
  Transmission Date: 20120403
  Serious: Yes (Other)
  Sender: FDA-Public Use
  Company Number: US-SHIONOGI, INC-2011000217

PATIENT

DRUGS (3)
  1. KAPVAY [Suspect]
     Dosage: 0.1 MG, BID
     Dates: start: 20111108, end: 20111101
  2. ADDERALL 5 [Concomitant]
     Dosage: 30 MG, QD
  3. KAPVAY [Suspect]
     Dosage: 0.1 MG, AT BEDTIME
     Dates: start: 20111008, end: 20111108

REACTIONS (1)
  - CONVULSION [None]
